FAERS Safety Report 4879252-X (Version None)
Quarter: 2005Q4

REPORT INFORMATION
  Report Type: 
  Country: None (occurrence: None)
  Receive Date: 20051207
  Receipt Date: 20041221
  Transmission Date: 20060501
  Serious: Yes (Other)
  Sender: FDA-Public Use
  Company Number: 2004110672

PATIENT
  Age: 50 Year
  Sex: Male
  Weight: 100.6985 kg

DRUGS (2)
  1. VIAGRA [Suspect]
     Indication: ERECTILE DYSFUNCTION
     Dosage: 50 MG (50 MG)
     Dates: start: 20041201
  2. ANTIHYPERTENSIVES(ANTIHYPERTENSIVES) [Concomitant]

REACTIONS (4)
  - DRUG INEFFECTIVE [None]
  - EJACULATION DISORDER [None]
  - ERECTION INCREASED [None]
  - PREMATURE EJACULATION [None]
